FAERS Safety Report 23911338 (Version 1)
Quarter: 2024Q2

REPORT INFORMATION
  Report Type: Spontaneous
  Country: US (occurrence: None)
  Receive Date: 20240528
  Receipt Date: 20240528
  Transmission Date: 20240716
  Serious: Yes (Death)
  Sender: FDA-Public Use
  Company Number: None

PATIENT
  Age: 58 Year
  Sex: Male

DRUGS (1)
  1. MEGESTROL [Suspect]
     Active Substance: MEGESTROL
     Dosage: 5ML QAM

REACTIONS (3)
  - Pneumonia [None]
  - Cardiac arrest [None]
  - Renal cancer [None]

NARRATIVE: CASE EVENT DATE: 20240508
